FAERS Safety Report 14391479 (Version 1)
Quarter: 2018Q1

REPORT INFORMATION
  Report Type: Spontaneous
  Country: US (occurrence: US)
  Receive Date: 20180116
  Receipt Date: 20180116
  Transmission Date: 20180509
  Serious: No
  Sender: FDA-Public Use
  Company Number: US-ARALEZ PHARMACEUTICALS R+D INC.-2018-ARA-000068

PATIENT
  Sex: Female

DRUGS (1)
  1. YOSPRALA [Suspect]
     Active Substance: ASPIRIN\OMEPRAZOLE
     Indication: CONTUSION
     Dosage: UNK

REACTIONS (3)
  - Off label use [Unknown]
  - Malaise [Unknown]
  - Drug ineffective for unapproved indication [Unknown]
